FAERS Safety Report 5625745-7 (Version None)
Quarter: 2008Q1

REPORT INFORMATION
  Report Type: 
  Country: None (occurrence: None)
  Receive Date: 20080207
  Receipt Date: 20080207
  Transmission Date: 20080703
  Serious: Yes (Other)
  Sender: FDA-Public Use
  Company Number: None

PATIENT
  Sex: Male

DRUGS (12)
  1. REVLIMID [Suspect]
     Indication: MULTIPLE MYELOMA
     Dosage: 25MG DAILY X21D/28D PO
     Route: 048
     Dates: start: 20070924, end: 20071006
  2. DEXAMETHASONE TAB [Concomitant]
  3. HYDROMORPHONE HCL [Concomitant]
  4. ALLOPURINOL [Concomitant]
  5. ACETAMINOPHEN AND HYDROCODONE BITARTRATE [Concomitant]
  6. PROCRIT [Concomitant]
  7. ALLOPURINOL [Concomitant]
  8. FENTANYL [Concomitant]
  9. NOVOLIN N [Concomitant]
  10. NOVOLIN R [Concomitant]
  11. ONDANSETRON [Concomitant]
  12. RANITIDINE [Concomitant]

REACTIONS (2)
  - PANCYTOPENIA [None]
  - PNEUMONIA [None]
